FAERS Safety Report 23701059 (Version 3)
Quarter: 2024Q3

REPORT INFORMATION
  Report Type: Spontaneous
  Country: JP (occurrence: JP)
  Receive Date: 20240403
  Receipt Date: 20240815
  Transmission Date: 20241016
  Serious: Yes (Hospitalization)
  Sender: AMGEN
  Company Number: JP-AMGEN-JPNSP2024063633

PATIENT
  Age: 84 Year
  Sex: Female

DRUGS (4)
  1. EVENITY [Suspect]
     Active Substance: ROMOSOZUMAB-AQQG
     Indication: Product used for unknown indication
     Dosage: 210 MILLIGRAM
     Route: 058
     Dates: start: 20221029, end: 20230325
  2. LORAZEPAM [Concomitant]
     Active Substance: LORAZEPAM
  3. TRIAZOLAM [Concomitant]
     Active Substance: TRIAZOLAM
  4. HALCION [Concomitant]
     Active Substance: TRIAZOLAM

REACTIONS (44)
  - Renal cyst [Unknown]
  - Back pain [Unknown]
  - Abdominal discomfort [Unknown]
  - Vomiting [Unknown]
  - Restlessness [Unknown]
  - Dizziness [Unknown]
  - Asthenopia [Unknown]
  - Epistaxis [Unknown]
  - Feeling abnormal [Unknown]
  - Paraesthesia [Unknown]
  - Dysphonia [Unknown]
  - Mastication disorder [Unknown]
  - Hypoaesthesia [Unknown]
  - Swelling [Unknown]
  - Hypertension [Unknown]
  - Hepatic steatosis [Unknown]
  - Blood potassium decreased [Unknown]
  - Alopecia [Unknown]
  - Decreased appetite [Unknown]
  - Gastrooesophageal reflux disease [Unknown]
  - Varicose vein [Not Recovered/Not Resolved]
  - Pain [Unknown]
  - Hyperhidrosis [Unknown]
  - Hair colour changes [Unknown]
  - Bone loss [Unknown]
  - Joint swelling [Unknown]
  - Phlebitis [Not Recovered/Not Resolved]
  - Gingival discomfort [Unknown]
  - Skin discolouration [Unknown]
  - Obesity [Unknown]
  - Insomnia [Unknown]
  - Breast swelling [Unknown]
  - Pharyngeal disorder [Unknown]
  - Paraesthesia oral [Unknown]
  - Bone pain [Unknown]
  - Ill-defined disorder [Unknown]
  - Fatigue [Unknown]
  - Skin wrinkling [Unknown]
  - Muscle spasms [Unknown]
  - Dysgeusia [Unknown]
  - Bladder disorder [Unknown]
  - Nervousness [Unknown]
  - Body height decreased [Unknown]
  - Bone swelling [Unknown]

NARRATIVE: CASE EVENT DATE: 20240326
